FAERS Safety Report 20406070 (Version 1)
Quarter: 2022Q1

REPORT INFORMATION
  Report Type: Spontaneous
  Country: US (occurrence: None)
  Receive Date: 20220130
  Receipt Date: 20220130
  Transmission Date: 20220424
  Serious: Yes (Other)
  Sender: FDA-Public Use
  Company Number: None

PATIENT
  Age: 53 Year
  Sex: Female
  Weight: 83.4 kg

DRUGS (3)
  1. SOTROVIMAB [Suspect]
     Active Substance: SOTROVIMAB
     Indication: Breast cancer
     Dosage: FREQUENCY : ONCE;?
     Route: 042
     Dates: start: 20220130, end: 20220130
  2. SOTROVIMAB [Suspect]
     Active Substance: SOTROVIMAB
     Indication: COVID-19
  3. Sotrovima b [Concomitant]
     Dates: start: 20220130, end: 20220130

REACTIONS (5)
  - Infusion related reaction [None]
  - Back pain [None]
  - Musculoskeletal pain [None]
  - Chest pain [None]
  - Costovertebral angle tenderness [None]

NARRATIVE: CASE EVENT DATE: 20220130
